FAERS Safety Report 5932857 (Version 2)
Quarter: 2012Q4

REPORT INFORMATION
  Report Type: 
  Country: SE (occurrence: SE)
  Receive Date: 20051130
  Receipt Date: 20121119
  Transmission Date: 20130627
  Serious: Yes (Hospitalization)
  Sender: FDA-Public Use
  Company Number: SE-JNJFOC-20051105386

PATIENT
  Age: 34 Year
  Sex: Female

DRUGS (3)
  1. IPREN [Suspect]
     Indication: ANAL INJURY
     Route: 048
     Dates: start: 20050804
  2. DULCOLAX [Suspect]
     Indication: ANAL INJURY
     Route: 048
     Dates: start: 20050804, end: 20050813
  3. PARACETAMOL [Suspect]
     Indication: ANAL INJURY
     Route: 048
     Dates: start: 20050804

REACTIONS (5)
  - Generalised oedema [Recovered/Resolved]
  - Dyspnoea [Recovering/Resolving]
  - Fatigue [Unknown]
  - Depression [Unknown]
  - Asthenia [Unknown]
